FAERS Safety Report 7865698-4 (Version None)
Quarter: 2011Q4

REPORT INFORMATION
  Report Type: 
  Country: None (occurrence: None)
  Receive Date: 20111028
  Receipt Date: 20110209
  Transmission Date: 20120403
  Serious: No
  Sender: FDA-Public Use
  Company Number: US-GLAXOSMITHKLINE-A0912694A

PATIENT
  Age: 59 Year
  Sex: Male
  Weight: 89.5 kg

DRUGS (7)
  1. SINGULAIR [Concomitant]
     Dosage: 10MG PER DAY
     Route: 048
  2. FEXOFENADINE [Concomitant]
     Dosage: 180MG PER DAY
     Route: 048
  3. SERTRALINE HYDROCHLORIDE [Concomitant]
     Dosage: 2.5MGD PER DAY
     Route: 048
  4. ADVAIR DISKUS 100/50 [Suspect]
     Indication: ASTHMA
     Dosage: 1PUFF TWICE PER DAY
     Route: 055
     Dates: start: 20110202, end: 20110207
  5. BENADRYL [Concomitant]
     Dosage: 1TAB AS REQUIRED
     Route: 048
  6. FLUTICASONE PROPIONATE [Concomitant]
     Dosage: 2PUFF PER DAY
     Route: 045
  7. ALBUTEROL [Concomitant]
     Dosage: 1PUFF VARIABLE DOSE
     Route: 055

REACTIONS (3)
  - WHEEZING [None]
  - COUGH [None]
  - PRODUCT QUALITY ISSUE [None]
